FAERS Safety Report 8981928 (Version 1)
Quarter: 2012Q4

REPORT INFORMATION
  Report Type: 
  Country: US (occurrence: US)
  Receive Date: 20121212
  Receipt Date: 20121212
  Transmission Date: 20130627
  Serious: Yes (Death)
  Sender: FDA-Public Use
  Company Number: US-ASTELLAS-1116764

PATIENT
  Age: 69 Year
  Sex: Female

DRUGS (2)
  1. TARCEVA [Suspect]
     Indication: LUNG NEOPLASM MALIGNANT
     Route: 048
     Dates: start: 20090122
  2. TARCEVA [Suspect]
     Route: 048
     Dates: end: 20090213

REACTIONS (7)
  - Lung neoplasm malignant [Fatal]
  - Fatigue [Unknown]
  - Dyspepsia [Recovered/Resolved]
  - Productive cough [Recovered/Resolved]
  - Diarrhoea [Recovering/Resolving]
  - Fatigue [Recovering/Resolving]
  - Stomatitis [Recovered/Resolved]
